FAERS Safety Report 5442025-3 (Version None)
Quarter: 2007Q3

REPORT INFORMATION
  Report Type: 
  Country: None (occurrence: None)
  Receive Date: 20070904
  Receipt Date: 20070823
  Transmission Date: 20080115
  Serious: Yes (Hospitalization)
  Sender: FDA-Public Use
  Company Number: AU-ROCHE-503012

PATIENT
  Age: 41 Year
  Sex: Female
  Weight: 62 kg

DRUGS (5)
  1. CAPECITABINE [Suspect]
     Dosage: GIVEN ON DAYS 1-14 EVERY 3 WEEKS.
     Route: 048
     Dates: start: 20061212
  2. BEVACIZUMAB [Suspect]
     Dosage: GIVEN ON DAY 1 EVERY 3 WEEKS.
     Route: 042
     Dates: start: 20061212
  3. MITOMYCIN-C BULK POWDER [Suspect]
     Dosage: GIVEN ON DAY 1 EVERY 6 WEEKS.
     Route: 042
     Dates: start: 20061212
  4. PANTOPRAZOLE SODIUM [Concomitant]
     Route: 048
     Dates: start: 20070601
  5. METOCLOPRAMIDE [Concomitant]
     Route: 048
     Dates: start: 20070601, end: 20070621

REACTIONS (1)
  - THROMBOTIC MICROANGIOPATHY [None]
